FAERS Safety Report 8061493-4 (Version None)
Quarter: 2012Q1

REPORT INFORMATION
  Report Type: 
  Country: None (occurrence: None)
  Receive Date: 20120120
  Receipt Date: 20111212
  Transmission Date: 20120608
  Serious: No
  Sender: FDA-Public Use
  Company Number: US-ALLERGAN-1116256US

PATIENT
  Age: 56 Year
  Sex: Female

DRUGS (3)
  1. RESTASIS [Suspect]
     Indication: DRY EYE
     Dosage: 2 GTT, BID
     Route: 047
     Dates: start: 20111201, end: 20111204
  2. REFRESH PLUS [Concomitant]
     Indication: DRY EYE
     Dosage: 2 GTT, PRN
     Route: 047
     Dates: start: 20111101
  3. REFRESH LIQUIGEL OPHTHALMIC [Concomitant]
     Indication: DRY EYE
     Dosage: 2 GTT, QHS
     Route: 047
     Dates: start: 20111101

REACTIONS (4)
  - HYPERSENSITIVITY [None]
  - LACRIMATION INCREASED [None]
  - EYE IRRITATION [None]
  - OCULAR HYPERAEMIA [None]
